FAERS Safety Report 21684975 (Version 2)
Quarter: 2023Q1

REPORT INFORMATION
  Report Type: Report from Study
  Country: US (occurrence: US)
  Receive Date: 20221205
  Receipt Date: 20230110
  Transmission Date: 20230418
  Serious: No
  Sender: FDA-Public Use
  Company Number: US-ABBVIE-4174488

PATIENT
  Sex: Female

DRUGS (1)
  1. HUMIRA [Suspect]
     Active Substance: ADALIMUMAB
     Indication: Rheumatoid arthritis
     Dosage: STRENGTH: 40MG
     Route: 058

REACTIONS (5)
  - Night sweats [Unknown]
  - Rheumatoid arthritis [Unknown]
  - Injection site pruritus [Unknown]
  - Asthma [Unknown]
  - Hypertension [Unknown]
